FAERS Safety Report 9501740 (Version 1)
Quarter: 2013Q3

REPORT INFORMATION
  Report Type: Spontaneous
  Country: US (occurrence: US)
  Receive Date: 20130905
  Receipt Date: 20130905
  Transmission Date: 20140515
  Serious: Yes (Other)
  Sender: FDA-Public Use
  Company Number: US-PFIZER INC-2013254976

PATIENT
  Age: 49 Year
  Sex: Female
  Weight: 82 kg

DRUGS (5)
  1. NORVASC [Suspect]
     Indication: CARDIAC DISORDER
     Dosage: 2.5 MG, 1X/DAY
     Dates: start: 20130809, end: 20130811
  2. NIASPAN [Suspect]
     Indication: HIGH DENSITY LIPOPROTEIN INCREASED
     Dosage: 500 MG, 1X/DAY
     Route: 048
     Dates: start: 20130809, end: 20130811
  3. REGLAN [Suspect]
     Indication: NAUSEA
     Dosage: UNK
     Route: 040
     Dates: start: 20130811, end: 20130811
  4. ASPIRIN [Concomitant]
     Indication: ADJUVANT THERAPY
     Dosage: 81 MG, 1X/DAY (1 IN 1 D)
     Dates: start: 20130809, end: 20130811
  5. JANUVIA [Concomitant]
     Indication: DIABETES MELLITUS
     Dosage: UNK

REACTIONS (7)
  - Headache [Recovered/Resolved]
  - Dyskinesia [Recovered/Resolved]
  - Nausea [Recovered/Resolved]
  - Paraesthesia [Recovered/Resolved]
  - Muscle spasms [Recovered/Resolved]
  - Feeling hot [Recovered/Resolved]
  - Fatigue [Recovered/Resolved]
